FAERS Safety Report 6840273-9 (Version None)
Quarter: 2010Q3

REPORT INFORMATION
  Report Type: 
  Country: None (occurrence: None)
  Receive Date: 20100714
  Receipt Date: 20100705
  Transmission Date: 20110219
  Serious: Yes (Hospitalization, Other)
  Sender: FDA-Public Use
  Company Number: CHNY2010JP00469

PATIENT
  Age: 64 Year
  Sex: Male

DRUGS (2)
  1. NICOTINELL TTS (NCH) [Suspect]
     Indication: SMOKING CESSATION THERAPY
     Dosage: 35 MG, QD
     Route: 062
     Dates: start: 20080418, end: 20080424
  2. INSULIN [Concomitant]
     Indication: DIABETES MELLITUS

REACTIONS (10)
  - BLOOD THYROID STIMULATING HORMONE DECREASED [None]
  - COMA SCALE ABNORMAL [None]
  - DEPRESSED LEVEL OF CONSCIOUSNESS [None]
  - HEPATIC ENZYME INCREASED [None]
  - HYPERHIDROSIS [None]
  - HYPONATRAEMIA [None]
  - INAPPROPRIATE ANTIDIURETIC HORMONE SECRETION [None]
  - MALAISE [None]
  - MOVEMENT DISORDER [None]
  - THIRST [None]
